FAERS Safety Report 12810427 (Version 2)
Quarter: 2016Q4

REPORT INFORMATION
  Report Type: Spontaneous
  Country: US (occurrence: US)
  Receive Date: 20161005
  Receipt Date: 20161102
  Transmission Date: 20170207
  Serious: Yes (Other)
  Sender: FDA-Public Use
  Company Number: US-AUROBINDO-AUR-APL-2016-12030

PATIENT
  Age: 90 Year
  Sex: Male

DRUGS (5)
  1. VALACICLOVIR 500MG [Suspect]
     Active Substance: VALACYCLOVIR HYDROCHLORIDE
     Indication: PRODUCT USED FOR UNKNOWN INDICATION
     Dosage: 500 MG, TWO TIMES A DAY
     Route: 048
  2. ACICLOVIR [Suspect]
     Active Substance: ACYCLOVIR
     Indication: NECROTISING RETINITIS
     Dosage: 5 MG/KG, DAILY
     Route: 042
  3. FOSCARNET [Suspect]
     Active Substance: FOSCARNET
     Indication: NECROTISING RETINITIS
     Route: 065
  4. PREDNISONE. [Concomitant]
     Active Substance: PREDNISONE
     Dosage: 40 MG, DAILY
     Route: 065
  5. PREDNISONE. [Concomitant]
     Active Substance: PREDNISONE
     Indication: PRODUCT USED FOR UNKNOWN INDICATION
     Dosage: 5 MG, DAILY
     Route: 065

REACTIONS (4)
  - Vitritis [Recovered/Resolved]
  - Condition aggravated [Unknown]
  - Retinal detachment [Recovered/Resolved]
  - Drug ineffective [Unknown]
